FAERS Safety Report 18761959 (Version 1)
Quarter: 2021Q1

REPORT INFORMATION
  Report Type: Spontaneous
  Country: US (occurrence: US)
  Receive Date: 20210116
  Receipt Date: 20210116
  Transmission Date: 20210419
  Serious: Yes (Death, Hospitalization)
  Sender: FDA-Public Use
  Company Number: None

PATIENT
  Age: 36 Year
  Sex: Female
  Weight: 134.4 kg

DRUGS (6)
  1. CYTARABINE. [Suspect]
     Active Substance: CYTARABINE
     Indication: PRODUCT USED FOR UNKNOWN INDICATION
     Dates: end: 20180808
  2. DEXAMETHASONE. [Suspect]
     Active Substance: DEXAMETHASONE
     Dates: end: 20180828
  3. DAUNORUBICIN [Suspect]
     Active Substance: DAUNORUBICIN
     Dates: end: 20180829
  4. METHOTREXATE. [Suspect]
     Active Substance: METHOTREXATE
     Indication: PRODUCT USED FOR UNKNOWN INDICATION
     Dates: end: 20180917
  5. VINCRISTINE SULFATE. [Suspect]
     Active Substance: VINCRISTINE SULFATE
     Dates: end: 20180829
  6. ONCASPAR [Suspect]
     Active Substance: PEGASPARGASE
     Dosage: ?          OTHER DOSE:3750 IU;?
     Dates: end: 20180824

REACTIONS (13)
  - Hypotension [None]
  - Pulse absent [None]
  - Epistaxis [None]
  - Sepsis [None]
  - Thrombocytopenia [None]
  - Mouth haemorrhage [None]
  - Streptococcus test positive [None]
  - Unresponsive to stimuli [None]
  - Blood culture positive [None]
  - Acute kidney injury [None]
  - Dialysis [None]
  - Hepatic steatosis [None]
  - Pyrexia [None]

NARRATIVE: CASE EVENT DATE: 20180926
